FAERS Safety Report 24184415 (Version 1)
Quarter: 2024Q3

REPORT INFORMATION
  Report Type: Spontaneous
  Country: US (occurrence: US)
  Receive Date: 20240807
  Receipt Date: 20240807
  Transmission Date: 20241017
  Serious: Yes (Hospitalization)
  Sender: BOEHRINGER INGELHEIM
  Company Number: DE-BoehringerIngelheim-2024-BI-041110

PATIENT

DRUGS (1)
  1. JARDIANCE [Suspect]
     Active Substance: EMPAGLIFLOZIN
     Indication: Product used for unknown indication
     Dosage: EVERY DAY
     Dates: start: 2022

REACTIONS (3)
  - Abdominal infection [Recovered/Resolved]
  - Spinal cord infection [Unknown]
  - Spinal support [Not Recovered/Not Resolved]

NARRATIVE: CASE EVENT DATE: 20231009
